FAERS Safety Report 9393401 (Version 1)
Quarter: 2013Q3

REPORT INFORMATION
  Report Type: Spontaneous
  Country: US (occurrence: None)
  Receive Date: 20130709
  Receipt Date: 20130709
  Transmission Date: 20140515
  Serious: Yes (Life-Threatening, Hospitalization)
  Sender: FDA-Public Use
  Company Number: None

PATIENT
  Age: 44 Year
  Sex: Female
  Weight: 57.15 kg

DRUGS (1)
  1. LINZESS [Suspect]
     Indication: CONSTIPATION
     Route: 048

REACTIONS (2)
  - Diverticulitis [None]
  - Intestinal perforation [None]
